FAERS Safety Report 5712626-3 (Version None)
Quarter: 2008Q2

REPORT INFORMATION
  Report Type: 
  Country: None (occurrence: None)
  Receive Date: 20080422
  Receipt Date: 20080417
  Transmission Date: 20081010
  Serious: Yes (Life-Threatening, Other)
  Sender: FDA-Public Use
  Company Number: IE-BAYER-200810027BNE

PATIENT
  Age: 59 Year
  Sex: Female

DRUGS (10)
  1. ULTRAVIST 300 [Suspect]
     Indication: SCAN WITH CONTRAST
     Dosage: TOTAL DAILY DOSE: 90 ML
     Route: 042
     Dates: start: 20071228, end: 20071228
  2. AUGMENTIN '125' [Concomitant]
     Indication: DRUG USE FOR UNKNOWN INDICATION
     Dosage: TOTAL DAILY DOSE: 3.6 G
     Dates: start: 20071226
  3. TRAMADOL HCL [Concomitant]
     Indication: DRUG USE FOR UNKNOWN INDICATION
     Dates: start: 20071226
  4. ACETAMINOPHEN [Concomitant]
     Indication: DRUG USE FOR UNKNOWN INDICATION
     Dosage: TOTAL DAILY DOSE: 3 G
     Dates: start: 20071226
  5. ACETAMINOPHEN [Concomitant]
     Dosage: TOTAL DAILY DOSE: 3 G
     Dates: start: 20071228
  6. KLACID LA [Concomitant]
     Indication: DRUG USE FOR UNKNOWN INDICATION
     Dosage: TOTAL DAILY DOSE: 500 MG
     Route: 048
     Dates: start: 20071227
  7. LANSOPRAZOLE [Concomitant]
     Indication: DRUG USE FOR UNKNOWN INDICATION
     Dosage: TOTAL DAILY DOSE: 30 MG
     Dates: start: 20071228, end: 20071228
  8. ALPRAZOLAM [Concomitant]
     Indication: DRUG USE FOR UNKNOWN INDICATION
     Dosage: TOTAL DAILY DOSE: 0.5 MG
     Dates: start: 20071228, end: 20071228
  9. HYDROCORTISONE [Concomitant]
     Indication: DRUG USE FOR UNKNOWN INDICATION
     Dosage: TOTAL DAILY DOSE: 300 MG
     Route: 042
     Dates: start: 20071228
  10. COMBIVENT NEB [Concomitant]
     Indication: DRUG USE FOR UNKNOWN INDICATION
     Route: 055
     Dates: start: 20071228

REACTIONS (5)
  - CHEST DISCOMFORT [None]
  - CYANOSIS [None]
  - LOSS OF CONSCIOUSNESS [None]
  - PANIC ATTACK [None]
  - URINARY INCONTINENCE [None]
